FAERS Safety Report 16402586 (Version 1)
Quarter: 2019Q2

REPORT INFORMATION
  Report Type: Spontaneous
  Country: US (occurrence: US)
  Receive Date: 20190607
  Receipt Date: 20190607
  Transmission Date: 20190711
  Serious: No
  Sender: FDA-Public Use
  Company Number: US-MALLINCKRODT-T201902178

PATIENT
  Sex: Female
  Weight: 63 kg

DRUGS (1)
  1. HYDROCODONE/ACETAMINOPHEN [Suspect]
     Active Substance: ACETAMINOPHEN\HYDROCODONE
     Indication: NEUROPATHY PERIPHERAL
     Dosage: 10/325 MG, 4 TABLETS A DAY (1.5 TABLETS, THEN 1.5 TABLETS, THEN 1 TABLET)
     Route: 048
     Dates: start: 2018

REACTIONS (3)
  - Scab [Recovering/Resolving]
  - Pruritus [Recovered/Resolved]
  - Rash [Unknown]

NARRATIVE: CASE EVENT DATE: 2018
